FAERS Safety Report 11416754 (Version 5)
Quarter: 2017Q4

REPORT INFORMATION
  Report Type: Report from Study
  Country: None (occurrence: BR)
  Receive Date: 20150825
  Receipt Date: 20171123
  Transmission Date: 20180320
  Serious: Yes (Hospitalization, Other)
  Sender: FDA-Public Use
  Company Number: BR-ABBVIE-15K-020-1449095-00

PATIENT
  Age: 62 Year
  Sex: Female
  Weight: 63 kg

DRUGS (8)
  1. INSULIN [Concomitant]
     Active Substance: INSULIN NOS
     Dosage: 20ML IN THE MORNING
     Route: 058
  2. LOSARTAN. [Concomitant]
     Active Substance: LOSARTAN
     Indication: HYPERTENSION
     Route: 048
  3. METHOTREXATE. [Suspect]
     Active Substance: METHOTREXATE
     Indication: ARTHRITIS
     Route: 048
     Dates: start: 20151022
  4. HUMIRA [Suspect]
     Active Substance: ADALIMUMAB
     Indication: PSORIATIC ARTHROPATHY
     Route: 058
     Dates: start: 20120818
  5. INSULIN [Concomitant]
     Active Substance: INSULIN NOS
     Indication: DIABETES MELLITUS
     Dosage: 15 ML IN THE MORNING / 6 ML IN THE AFTERNOON
     Route: 058
  6. HYDROCHLOROTHIAZIDE. [Concomitant]
     Active Substance: HYDROCHLOROTHIAZIDE
     Indication: HYPERTENSION
     Route: 048
  7. METHOTREXATE. [Suspect]
     Active Substance: METHOTREXATE
     Indication: RHEUMATOID ARTHRITIS
     Route: 058
     Dates: end: 20150807
  8. PRELONE [Concomitant]
     Active Substance: PREDNISOLONE
     Indication: PAIN
     Route: 048

REACTIONS (15)
  - Hypophagia [Unknown]
  - Gait disturbance [Not Recovered/Not Resolved]
  - Hypophagia [Recovered/Resolved]
  - Inflammation [Not Recovered/Not Resolved]
  - Liver disorder [Recovered/Resolved]
  - Arthralgia [Unknown]
  - Arthritis [Not Recovered/Not Resolved]
  - Pancreatitis [Recovered/Resolved]
  - Insomnia [Unknown]
  - Malaise [Unknown]
  - Muscle atrophy [Unknown]
  - Pain [Not Recovered/Not Resolved]
  - Liver disorder [Recovered/Resolved]
  - Hypophagia [Recovered/Resolved]
  - Mobility decreased [Not Recovered/Not Resolved]

NARRATIVE: CASE EVENT DATE: 201505
